FAERS Safety Report 11350091 (Version 1)
Quarter: 2015Q3

REPORT INFORMATION
  Report Type: Spontaneous
  Country: AR (occurrence: AR)
  Receive Date: 20150807
  Receipt Date: 20150807
  Transmission Date: 20151125
  Serious: Yes (Other)
  Sender: FDA-Public Use
  Company Number: AR-NOVOPROD-458895

PATIENT
  Age: 32 Year
  Sex: Female
  Weight: 99 kg

DRUGS (2)
  1. NOVORAPID [Suspect]
     Active Substance: INSULIN ASPART
     Indication: GESTATIONAL DIABETES
     Dosage: 6-12 IU, QD
     Route: 058
     Dates: start: 201503
  2. LEVEMIR [Suspect]
     Active Substance: INSULIN DETEMIR
     Indication: GESTATIONAL DIABETES
     Dosage: 60 IU, QD
     Route: 058
     Dates: start: 201503

REACTIONS (2)
  - Exposure during pregnancy [Unknown]
  - Uterine haematoma [Recovered/Resolved]

NARRATIVE: CASE EVENT DATE: 201503
